FAERS Safety Report 22285398 (Version 3)
Quarter: 2023Q2

REPORT INFORMATION
  Report Type: Spontaneous
  Country: US (occurrence: US)
  Receive Date: 20230504
  Receipt Date: 20230517
  Transmission Date: 20230721
  Serious: Yes (Other)
  Sender: FDA-Public Use
  Company Number: US-APIL-2312778US

PATIENT
  Sex: Female
  Weight: 81.646 kg

DRUGS (4)
  1. KYBELLA [Suspect]
     Active Substance: DEOXYCHOLIC ACID
     Indication: Lipolysis procedure
     Dosage: 2 VIALS
     Route: 058
     Dates: start: 20210226, end: 20210226
  2. KYBELLA [Suspect]
     Active Substance: DEOXYCHOLIC ACID
     Dosage: 1 VIAL
     Route: 058
     Dates: start: 20210128, end: 20210128
  3. KYBELLA [Suspect]
     Active Substance: DEOXYCHOLIC ACID
     Dosage: 2 VIALS
     Route: 058
     Dates: start: 20201106, end: 20201106
  4. Opus [Concomitant]
     Indication: Lipolysis procedure
     Dosage: 2 TREATMENTS
     Dates: start: 2021

REACTIONS (10)
  - Limb operation [Unknown]
  - Lower limb fracture [Unknown]
  - Open fracture [Unknown]
  - Skin injury [Unknown]
  - Accident at home [Recovered/Resolved]
  - Swelling [Unknown]
  - Pain [Unknown]
  - Weight decreased [Unknown]
  - Bedridden [Unknown]
  - Drug ineffective [Unknown]

NARRATIVE: CASE EVENT DATE: 20180101
